FAERS Safety Report 7575027-1 (Version None)
Quarter: 2011Q2

REPORT INFORMATION
  Report Type: 
  Country: None (occurrence: None)
  Receive Date: 20110627
  Receipt Date: 20110617
  Transmission Date: 20111010
  Serious: Yes (Other)
  Sender: FDA-Public Use
  Company Number: ES-ASTRAZENECA-2011SE37191

PATIENT
  Age: 84 Year
  Sex: Male

DRUGS (7)
  1. CRESTOR [Suspect]
     Route: 048
     Dates: start: 20110424, end: 20110501
  2. ASPIRIN [Concomitant]
     Indication: CARDIOVASCULAR EVENT PROPHYLAXIS
     Dates: start: 20080811
  3. CAPENON [Concomitant]
     Dosage: 20/5 MG, 3 MONTHS
     Dates: start: 20110201
  4. FUROSEMIDA BEXAL [Concomitant]
     Dates: start: 20080811
  5. CAFINITRINA [Concomitant]
     Indication: MYOCARDIAL ISCHAEMIA
     Route: 060
     Dates: start: 20100803
  6. INSPRA [Concomitant]
     Indication: PROPHYLAXIS AGAINST GASTROINTESTINAL ULCER
     Dates: start: 20080811
  7. OMEPRAZOLE [Concomitant]

REACTIONS (4)
  - ARTHRALGIA [None]
  - DYSPNOEA [None]
  - BALANCE DISORDER [None]
  - MUSCLE CONTRACTURE [None]
